FAERS Safety Report 6933298-6 (Version None)
Quarter: 2010Q3

REPORT INFORMATION
  Report Type: 
  Country: None (occurrence: None)
  Receive Date: 20100818
  Receipt Date: 20100818
  Transmission Date: 20110219
  Serious: Yes (Other)
  Sender: FDA-Public Use
  Company Number: None

PATIENT
  Sex: Female
  Weight: 63.5036 kg

DRUGS (2)
  1. ROPINIROLE [Suspect]
     Indication: RESTLESS LEGS SYNDROME
     Dosage: 2 MG 2X/DAY BY MOUTH
     Route: 048
     Dates: start: 20070101
  2. MIRAPEX [Suspect]
     Indication: RESTLESS LEGS SYNDROME
     Dates: start: 20090101

REACTIONS (3)
  - DRUG INEFFECTIVE [None]
  - NAUSEA [None]
  - PRODUCT SUBSTITUTION ISSUE [None]
